FAERS Safety Report 8936771 (Version 1)
Quarter: 2012Q4

REPORT INFORMATION
  Report Type: 
  Country: JP (occurrence: JP)
  Receive Date: 20121130
  Receipt Date: 20121130
  Transmission Date: 20130627
  Serious: Yes (Other)
  Sender: FDA-Public Use
  Company Number: JP-ASTRAZENECA-2012SE88780

PATIENT
  Age: 65 Year
  Sex: Female

DRUGS (2)
  1. XYLOCAINE [Suspect]
     Dosage: Dose unknown
     Route: 065
  2. MARCAIN [Suspect]
     Dosage: Dose unknown
     Route: 065

REACTIONS (1)
  - Shock [Unknown]
